FAERS Safety Report 25626722 (Version 1)
Quarter: 2025Q3

REPORT INFORMATION
  Report Type: Spontaneous
  Country: GB (occurrence: GB)
  Receive Date: 20250731
  Receipt Date: 20250731
  Transmission Date: 20251021
  Serious: Yes (Other)
  Sender: GALPHARM INTERNATIONAL
  Company Number: GB-ZENTIVA-2025-ZT-038371

PATIENT
  Age: 87 Year
  Sex: Female

DRUGS (1)
  1. ACETAMINOPHEN [Suspect]
     Active Substance: ACETAMINOPHEN
     Indication: Product used for unknown indication
     Route: 048

REACTIONS (4)
  - Choking [Unknown]
  - Product solubility abnormal [Unknown]
  - Product use complaint [Unknown]
  - Product preparation issue [Unknown]
